FAERS Safety Report 5072770-3 (Version None)
Quarter: 2006Q3

REPORT INFORMATION
  Report Type: 
  Country: None (occurrence: None)
  Receive Date: 20060807
  Receipt Date: 20060726
  Transmission Date: 20061208
  Serious: Yes (Death, Other)
  Sender: FDA-Public Use
  Company Number: PHBS2006JP11279

PATIENT
  Age: 33 Year
  Sex: Male

DRUGS (2)
  1. CYCLOSPORINE [Suspect]
     Indication: LIVER TRANSPLANT
     Route: 065
  2. TACROLIMUS [Suspect]
     Indication: LIVER TRANSPLANT
     Route: 065

REACTIONS (5)
  - ACIDOSIS [None]
  - HEPATIC ARTERY THROMBOSIS [None]
  - LIVER TRANSPLANT REJECTION [None]
  - RENAL FAILURE [None]
  - THROMBOTIC MICROANGIOPATHY [None]
